FAERS Safety Report 5986209-4 (Version None)
Quarter: 2008Q4

REPORT INFORMATION
  Report Type: 
  Country: None (occurrence: None)
  Receive Date: 20081209
  Receipt Date: 20081204
  Transmission Date: 20090506
  Serious: Yes (Disabling)
  Sender: FDA-Public Use
  Company Number: CA-BRISTOL-MYERS SQUIBB COMPANY-14423222

PATIENT
  Age: 50 Year
  Sex: Female

DRUGS (1)
  1. ORENCIA [Suspect]
     Indication: RHEUMATOID ARTHRITIS
     Dosage: INFUSION 4 ON 24-OCT-2008. INFUSION 12SEP08 AND 26SEP08
     Route: 042
     Dates: start: 20080829

REACTIONS (1)
  - NEUROPATHY PERIPHERAL [None]
